FAERS Safety Report 7665437-6 (Version None)
Quarter: 2011Q3

REPORT INFORMATION
  Report Type: 
  Country: None (occurrence: None)
  Receive Date: 20110806
  Receipt Date: 20110321
  Transmission Date: 20111222
  Serious: No
  Sender: FDA-Public Use
  Company Number: US-ABBOTT-11P-163-0713464-00

PATIENT
  Sex: Female
  Weight: 64.468 kg

DRUGS (5)
  1. NIASPAN [Suspect]
     Indication: BLOOD CHOLESTEROL
  2. OXYCODONE HCL [Concomitant]
     Indication: PAIN
     Dosage: THREE TIMES DAILY AS REQUIRED
  3. TRAMADOL HCL [Concomitant]
     Indication: BREAKTHROUGH PAIN
  4. METFORMIN HCL [Concomitant]
     Indication: DIABETES MELLITUS
  5. CLARITIN [Concomitant]
     Indication: PREMEDICATION

REACTIONS (3)
  - URTICARIA [None]
  - BURNING SENSATION [None]
  - PRURITUS [None]
